FAERS Safety Report 5895342-7 (Version None)
Quarter: 2008Q3

REPORT INFORMATION
  Report Type: 
  Country: None (occurrence: None)
  Receive Date: 20080923
  Receipt Date: 20080923
  Transmission Date: 20090109
  Serious: Yes (Other)
  Sender: FDA-Public Use
  Company Number: None

PATIENT
  Age: 20 Year
  Sex: Female
  Weight: 58.9676 kg

DRUGS (1)
  1. KENALOG [Suspect]

REACTIONS (7)
  - DRUG INEFFECTIVE [None]
  - EMOTIONAL DISTRESS [None]
  - FEELING ABNORMAL [None]
  - HEADACHE [None]
  - INJECTION SITE REACTION [None]
  - MENORRHAGIA [None]
  - SKIN DISORDER [None]
